FAERS Safety Report 19760679 (Version 6)
Quarter: 2022Q2

REPORT INFORMATION
  Report Type: Report from Study
  Country: US (occurrence: US)
  Receive Date: 20210830
  Receipt Date: 20220415
  Transmission Date: 20220721
  Serious: Yes (Other)
  Sender: FDA-Public Use
  Company Number: NVSC2021US193555

PATIENT
  Sex: Male

DRUGS (2)
  1. ENTRESTO [Suspect]
     Active Substance: SACUBITRIL\VALSARTAN
     Indication: Product used for unknown indication
     Dosage: UNK
     Route: 048
     Dates: start: 2019
  2. AMOXICILLIN\CLAVULANATE POTASSIUM [Suspect]
     Active Substance: AMOXICILLIN\CLAVULANATE POTASSIUM
     Indication: Product used for unknown indication
     Dosage: UNK
     Route: 065

REACTIONS (13)
  - Neuropathy peripheral [Unknown]
  - Haematuria [Unknown]
  - Haemorrhage urinary tract [Unknown]
  - Nephrolithiasis [Unknown]
  - Gait disturbance [Unknown]
  - Ejection fraction decreased [Unknown]
  - Calculus urinary [Unknown]
  - Blood urine present [Unknown]
  - Abdominal discomfort [Unknown]
  - Fall [Unknown]
  - Eye allergy [Recovered/Resolved with Sequelae]
  - Nasopharyngitis [Unknown]
  - Infection [Unknown]
